FAERS Safety Report 12884444 (Version 2)
Quarter: 2016Q4

REPORT INFORMATION
  Report Type: Other
  Country: CA (occurrence: CA)
  Receive Date: 20161026
  Receipt Date: 20161207
  Transmission Date: 20170207
  Serious: Yes (Other)
  Sender: FDA-Public Use
  Company Number: CA-SHIRE-CA201614819

PATIENT
  Age: 26 Year
  Sex: Female

DRUGS (10)
  1. TPN [Concomitant]
     Active Substance: AMINO ACIDS\DEXTROSE\ELECTROLYTES NOS\SOYBEAN OIL
     Indication: PRODUCT USED FOR UNKNOWN INDICATION
     Dosage: 1720 ML, 1X/DAY:QD OVER 8 HOURS THROUGH A CENTRAL LINE
     Route: 042
     Dates: end: 20160830
  2. TPN [Concomitant]
     Active Substance: AMINO ACIDS\DEXTROSE\ELECTROLYTES NOS\SOYBEAN OIL
     Dosage: 1200 ML, 1X/DAY:QD OVER 8 HOURS
     Route: 042
     Dates: start: 20160831
  3. VANCOMYCIN [Concomitant]
     Active Substance: VANCOMYCIN
     Indication: PRODUCT USED FOR UNKNOWN INDICATION
     Dosage: UNK, UNKNOWN
     Route: 065
  4. REVESTIVE [Suspect]
     Active Substance: TEDUGLUTIDE
     Indication: SHORT-BOWEL SYNDROME
     Dosage: 2.93 MG, 1X/DAY:QD
     Route: 058
     Dates: start: 20160930
  5. VITAMIN D                          /00107901/ [Concomitant]
     Active Substance: ERGOCALCIFEROL
     Indication: SUPPLEMENTATION THERAPY
     Dosage: 2000 IU, 1X/DAY:QD
     Route: 065
  6. FRAGMIN [Concomitant]
     Active Substance: DALTEPARIN SODIUM
     Dosage: 15000 IU, 1X/DAY:QD
     Route: 058
     Dates: start: 20161114
  7. PREVACID [Concomitant]
     Active Substance: LANSOPRAZOLE
     Indication: PRODUCT USED FOR UNKNOWN INDICATION
     Dosage: 1 TAB, 1X/DAY:QD
     Route: 048
  8. FRAGMIN [Concomitant]
     Active Substance: DALTEPARIN SODIUM
     Dosage: 18000 IU, 1X/DAY:QD
     Route: 058
     Dates: end: 20161113
  9. ASA [Concomitant]
     Active Substance: ASPIRIN
     Indication: PRODUCT USED FOR UNKNOWN INDICATION
     Dosage: 81 MG, 2X/DAY:BID
     Route: 048
  10. FRAGMIN [Concomitant]
     Active Substance: DALTEPARIN SODIUM
     Indication: PRODUCT USED FOR UNKNOWN INDICATION
     Dosage: 15000 IU, 1X/DAY:QD
     Route: 058

REACTIONS (12)
  - Pneumonia [Unknown]
  - Weight decreased [Unknown]
  - Change of bowel habit [Unknown]
  - Abdominal distension [Unknown]
  - Pyrexia [Unknown]
  - Haematochezia [Unknown]
  - Platelet count increased [Unknown]
  - Pulmonary embolism [Unknown]
  - Vomiting [Unknown]
  - Diarrhoea [Unknown]
  - Abdominal pain [Unknown]
  - Flatulence [Unknown]

NARRATIVE: CASE EVENT DATE: 20160930
